FAERS Safety Report 8189221-2 (Version None)
Quarter: 2012Q1

REPORT INFORMATION
  Report Type: 
  Country: None (occurrence: None)
  Receive Date: 20120306
  Receipt Date: 20120306
  Transmission Date: 20120608
  Serious: Yes (Hospitalization)
  Sender: FDA-Public Use
  Company Number: None

PATIENT
  Age: 68 Year
  Sex: Male
  Weight: 94.9 kg

DRUGS (1)
  1. METOPROLOL SUCCINATE [Suspect]
     Indication: ATRIAL FIBRILLATION
     Dosage: 75 MG EVERY DAY PO
     Route: 048
     Dates: start: 20120216, end: 20120229

REACTIONS (2)
  - SICK SINUS SYNDROME [None]
  - SLEEP APNOEA SYNDROME [None]
